FAERS Safety Report 24284814 (Version 1)
Quarter: 2024Q3

REPORT INFORMATION
  Report Type: Spontaneous
  Country: GB (occurrence: GB)
  Receive Date: 20240905
  Receipt Date: 20240905
  Transmission Date: 20241017
  Serious: Yes (Other)
  Sender: AUROBINDO
  Company Number: GB-MHRA-31600498

PATIENT

DRUGS (1)
  1. SUMATRIPTAN [Suspect]
     Active Substance: SUMATRIPTAN\SUMATRIPTAN SUCCINATE
     Indication: Vestibular migraine
     Dosage: 1 DOSAGE FORM
     Route: 065
     Dates: start: 20240821

REACTIONS (5)
  - Aggression [Recovered/Resolved]
  - Dizziness [Unknown]
  - Malaise [Unknown]
  - Onychophagia [Unknown]
  - Skin laceration [Unknown]

NARRATIVE: CASE EVENT DATE: 20240821
